FAERS Safety Report 15791299 (Version 3)
Quarter: 2019Q1

REPORT INFORMATION
  Report Type: Report from Study
  Country: None (occurrence: US)
  Receive Date: 20190104
  Receipt Date: 20190109
  Transmission Date: 20190417
  Serious: Yes (Life-Threatening, Other)
  Sender: FDA-Public Use
  Company Number: US-ABBVIE-19K-163-2612324-00

PATIENT
  Sex: Male
  Weight: 83.54 kg

DRUGS (3)
  1. VITAMIN D [Concomitant]
     Active Substance: CHOLECALCIFEROL
     Indication: VITAMIN SUPPLEMENTATION
  2. DIAZEPAM. [Concomitant]
     Active Substance: DIAZEPAM
     Indication: ANXIETY
  3. HUMIRA [Suspect]
     Active Substance: ADALIMUMAB
     Indication: PSORIASIS
     Route: 058
     Dates: start: 20180327, end: 20180913

REACTIONS (3)
  - Hepatic cancer metastatic [Not Recovered/Not Resolved]
  - Abdominal pain [Not Recovered/Not Resolved]
  - Neuroendocrine carcinoma metastatic [Not Recovered/Not Resolved]

NARRATIVE: CASE EVENT DATE: 201808
